FAERS Safety Report 12219137 (Version 2)
Quarter: 2016Q2

REPORT INFORMATION
  Report Type: Spontaneous
  Country: GB (occurrence: GB)
  Receive Date: 20160329
  Receipt Date: 20160411
  Transmission Date: 20160815
  Serious: Yes (Disabling, Other)
  Sender: FDA-Public Use
  Company Number: GB-TEVA-646544ACC

PATIENT
  Age: 48 Year
  Sex: Male

DRUGS (1)
  1. BISOPROLOL [Suspect]
     Active Substance: BISOPROLOL
     Indication: HYPERTENSION
     Route: 048
     Dates: start: 201602, end: 201602

REACTIONS (3)
  - Visual impairment [Unknown]
  - Hypotension [Unknown]
  - Dry eye [Not Recovered/Not Resolved]
